FAERS Safety Report 21308098 (Version 1)
Quarter: 2022Q3

REPORT INFORMATION
  Report Type: Spontaneous
  Country: US (occurrence: None)
  Receive Date: 20220908
  Receipt Date: 20220908
  Transmission Date: 20221027
  Serious: Yes (Hospitalization)
  Sender: FDA-Public Use
  Company Number: None

PATIENT
  Age: 8 Year
  Sex: Female
  Weight: 22.9 kg

DRUGS (3)
  1. CARBOPLATIN [Suspect]
     Active Substance: CARBOPLATIN
     Dates: end: 20220702
  2. ETOPOSIDE [Suspect]
     Active Substance: ETOPOSIDE
     Dates: end: 20220702
  3. MELPHALAN [Suspect]
     Active Substance: MELPHALAN
     Dates: end: 20220630

REACTIONS (6)
  - Rash vesicular [None]
  - Varicella [None]
  - COVID-19 [None]
  - Rhinovirus infection [None]
  - Respiratory distress [None]
  - Hypoxia [None]

NARRATIVE: CASE EVENT DATE: 20220823
